FAERS Safety Report 6486219-7 (Version None)
Quarter: 2009Q4

REPORT INFORMATION
  Report Type: 
  Country: None (occurrence: None)
  Receive Date: 20091209
  Receipt Date: 20090902
  Transmission Date: 20100525
  Serious: No
  Sender: FDA-Public Use
  Company Number: US-AMGEN-KDL357217

PATIENT
  Sex: Female
  Weight: 66.3 kg

DRUGS (1)
  1. ENBREL [Suspect]
     Indication: PSORIATIC ARTHROPATHY
     Route: 058
     Dates: start: 20050601

REACTIONS (5)
  - INFECTION [None]
  - NASOPHARYNGITIS [None]
  - PAIN [None]
  - PSORIATIC ARTHROPATHY [None]
  - SINUS CONGESTION [None]
